FAERS Safety Report 4913492-6 (Version None)
Quarter: 2006Q1

REPORT INFORMATION
  Report Type: 
  Country: None (occurrence: None)
  Receive Date: 20060216
  Receipt Date: 20060208
  Transmission Date: 20060701
  Serious: Yes (Other)
  Sender: FDA-Public Use
  Company Number: JP-SANOFI-SYNTHELABO-F01200600345

PATIENT
  Sex: Male
  Weight: 54 kg

DRUGS (5)
  1. OXALIPLATIN [Suspect]
     Indication: RECTAL CANCER
     Route: 042
     Dates: start: 20051108, end: 20051108
  2. FLUOROURACIL [Suspect]
     Dosage: 400 MG (268.5 MG/M2) BOLUS THEN 600 MG (402.7 MG/M2) CONTINUOUS INFUSION DAYS 1+2, Q2W
     Route: 042
     Dates: start: 20051108, end: 20051109
  3. CALCIUM LEVOFOLINATE [Suspect]
     Route: 042
     Dates: start: 20051108, end: 20051109
  4. CONCENTRATED HUMAN RED BLOOD CELLS [Concomitant]
     Dosage: 2 DF
     Route: 042
     Dates: start: 20060111, end: 20060113
  5. CONCENTRATED HUMAN BLOOD PLATELET [Concomitant]
     Dosage: 10 DF
     Route: 042
     Dates: start: 20060113, end: 20060113

REACTIONS (2)
  - HUMERUS FRACTURE [None]
  - METASTASES TO BONE [None]
